FAERS Safety Report 10029019 (Version 1)
Quarter: 2014Q1

REPORT INFORMATION
  Report Type: Spontaneous
  Country: US (occurrence: US)
  Receive Date: 20140321
  Receipt Date: 20140321
  Transmission Date: 20141002
  Serious: Yes (Other)
  Sender: FDA-Public Use
  Company Number: PHHY2014US033898

PATIENT
  Age: 22 Year
  Sex: Male

DRUGS (3)
  1. BACLOFEN INTRATHECAL [Suspect]
     Indication: DYSTONIA
     Dosage: }1050 UG, DAILY
     Route: 037
  2. BACLOFEN INTRATHECAL [Suspect]
     Indication: MUSCLE SPASTICITY
     Dosage: 890 UG, DAILY
     Route: 037
  3. LORAZEPAM TABLETS USP [Suspect]
     Dosage: 5 MG, DAILY

REACTIONS (4)
  - Kyphosis [Unknown]
  - Scoliosis [Unknown]
  - Sleep apnoea syndrome [Recovered/Resolved]
  - Dysphagia [Recovered/Resolved]
